FAERS Safety Report 7249391-7 (Version None)
Quarter: 2011Q1

REPORT INFORMATION
  Report Type: 
  Country: None (occurrence: None)
  Receive Date: 20110128
  Receipt Date: 20101130
  Transmission Date: 20110831
  Serious: Yes (Hospitalization, Other)
  Sender: FDA-Public Use
  Company Number: US-BAYER-201026635NA

PATIENT
  Sex: Female
  Weight: 61 kg

DRUGS (2)
  1. NSAID'S [Concomitant]
     Indication: PAIN
  2. YAZ [Suspect]
     Indication: PRODUCT USED FOR UNKNOWN INDICATION
     Dosage: UNK
     Route: 048
     Dates: start: 20080101, end: 20091012

REACTIONS (11)
  - CHEST PAIN [None]
  - ABDOMINAL PAIN UPPER [None]
  - ABDOMINAL PAIN [None]
  - PAIN IN EXTREMITY [None]
  - LOBAR PNEUMONIA [None]
  - DEEP VEIN THROMBOSIS [None]
  - PLEURAL EFFUSION [None]
  - PULMONARY EMBOLISM [None]
  - ATELECTASIS [None]
  - HAEMOPTYSIS [None]
  - GASTRIC DILATATION [None]
